FAERS Safety Report 14157013 (Version 1)
Quarter: 2017Q4

REPORT INFORMATION
  Report Type: Spontaneous
  Country: US (occurrence: US)
  Receive Date: 20171103
  Receipt Date: 20171103
  Transmission Date: 20180321
  Serious: Yes (Other)
  Sender: FDA-Public Use
  Company Number: None

PATIENT
  Age: 56 Year
  Sex: Female
  Weight: 73.8 kg

DRUGS (8)
  1. TYLENOL [Concomitant]
     Active Substance: ACETAMINOPHEN
  2. DULOXETINE. [Suspect]
     Active Substance: DULOXETINE
     Indication: MYALGIA
     Dosage: ?          QUANTITY:30 CAPSULE(S);?
     Route: 048
     Dates: start: 20171101, end: 20171102
  3. OXYCODONE [Concomitant]
     Active Substance: OXYCODONE
  4. KEFLEX [Concomitant]
     Active Substance: CEPHALEXIN
  5. SAVELLA [Concomitant]
     Active Substance: MILNACIPRAN HYDROCHLORIDE
  6. VITAMIN C [Concomitant]
     Active Substance: ASCORBIC ACID
  7. CALCIUM [Concomitant]
     Active Substance: CALCIUM
  8. MULTIVITAMINS [Concomitant]
     Active Substance: VITAMINS

REACTIONS (7)
  - Visual impairment [None]
  - Back pain [None]
  - Hepatic pain [None]
  - Headache [None]
  - Nausea [None]
  - Renal pain [None]
  - Vision blurred [None]

NARRATIVE: CASE EVENT DATE: 20171102
